FAERS Safety Report 6845050-0 (Version None)
Quarter: 2010Q3

REPORT INFORMATION
  Report Type: 
  Country: None (occurrence: None)
  Receive Date: 20100715
  Receipt Date: 20071205
  Transmission Date: 20110219
  Serious: No
  Sender: FDA-Public Use
  Company Number: US-PFIZER INC-2007068380

PATIENT
  Sex: Male
  Weight: 62.3 kg

DRUGS (2)
  1. CHANTIX [Suspect]
     Indication: SMOKING CESSATION THERAPY
     Dates: start: 20070808, end: 20070813
  2. VIAGRA [Concomitant]
     Dates: start: 20070812

REACTIONS (2)
  - BALANCE DISORDER [None]
  - DIZZINESS [None]
